FAERS Safety Report 14336459 (Version 1)
Quarter: 2017Q4

REPORT INFORMATION
  Report Type: Spontaneous
  Country: US (occurrence: US)
  Receive Date: 20171229
  Receipt Date: 20171229
  Transmission Date: 20180321
  Serious: Yes (Hospitalization)
  Sender: FDA-Public Use
  Company Number: US-FRESENIUS MEDICAL CARE RENAL THERAPIES GROUP-FMC-1712-001586

PATIENT
  Age: 71 Year
  Sex: Male

DRUGS (9)
  1. PRAVASTATIN. [Concomitant]
     Active Substance: PRAVASTATIN
  2. RENVELA [Concomitant]
     Active Substance: SEVELAMER CARBONATE
  3. ASCORBIC ACID. [Concomitant]
     Active Substance: ASCORBIC ACID
  4. FUROSEMIDE. [Concomitant]
     Active Substance: FUROSEMIDE
  5. ISOSORBIDE MONONITRATE. [Concomitant]
     Active Substance: ISOSORBIDE MONONITRATE
  6. DELFLEX WITH DEXTROSE 2.5% LOW MAGNESIUM LOW CALCIUM [Suspect]
     Active Substance: CALCIUM CHLORIDE\DEXTROSE\MAGNESIUM CHLORIDE\SODIUM CHLORIDE\SODIUM LACTATE
     Indication: END STAGE RENAL DISEASE
     Route: 033
  7. CARVEDILOL. [Concomitant]
     Active Substance: CARVEDILOL
  8. SODIUM BICARBONATE. [Concomitant]
     Active Substance: SODIUM BICARBONATE
  9. ALCLOMETASONE [Concomitant]
     Active Substance: ALCLOMETASONE
     Dosage: ONE APPLICATION TWO TIMES A DAY.  APPLY TO ARMS AND NECK.

REACTIONS (4)
  - Dehydration [Recovered/Resolved]
  - Anaemia [Recovered/Resolved]
  - Gastric ulcer haemorrhage [Recovered/Resolved]
  - Blood pressure decreased [Recovered/Resolved]

NARRATIVE: CASE EVENT DATE: 20171216
